FAERS Safety Report 20314551 (Version 1)
Quarter: 2022Q1

REPORT INFORMATION
  Report Type: Spontaneous
  Country: CN (occurrence: CN)
  Receive Date: 20220110
  Receipt Date: 20220110
  Transmission Date: 20220423
  Serious: Yes (Hospitalization)
  Sender: FDA-Public Use
  Company Number: CN-AstraZeneca-2021A909876

PATIENT
  Sex: Female

DRUGS (2)
  1. METOPROLOL [Suspect]
     Active Substance: METOPROLOL
     Route: 048
  2. METOPROLOL [Suspect]
     Active Substance: METOPROLOL
     Route: 048

REACTIONS (3)
  - Heart rate increased [Unknown]
  - Wrong technique in product usage process [Unknown]
  - Product dose omission in error [Unknown]
